FAERS Safety Report 12915221 (Version 1)
Quarter: 2016Q4

REPORT INFORMATION
  Report Type: Spontaneous
  Country: US (occurrence: US)
  Receive Date: 20161106
  Receipt Date: 20161106
  Transmission Date: 20170207
  Serious: No
  Sender: FDA-Public Use
  Company Number: US-RELYPSA-RLY2016002595

PATIENT
  Age: 58 Year
  Sex: Female

DRUGS (17)
  1. ALBUTEROL. [Concomitant]
     Active Substance: ALBUTEROL
  2. ASPIRIN                            /00002701/ [Concomitant]
     Active Substance: ASPIRIN
  3. VITAMIN C [Concomitant]
     Active Substance: ASCORBIC ACID
  4. NADOLOL. [Concomitant]
     Active Substance: NADOLOL
  5. VELTASSA [Suspect]
     Active Substance: PATIROMER
     Indication: HYPERKALAEMIA
     Dosage: 30 G, QD
     Route: 048
     Dates: start: 201608
  6. DULCOLAX (BISACODYL) [Concomitant]
     Active Substance: BISACODYL
  7. OMEPRAZOLE. [Concomitant]
     Active Substance: OMEPRAZOLE
  8. REGLAN [Concomitant]
     Active Substance: METOCLOPRAMIDE HYDROCHLORIDE
  9. CRESTOR [Concomitant]
     Active Substance: ROSUVASTATIN CALCIUM
  10. HUMALOG [Concomitant]
     Active Substance: INSULIN LISPRO
  11. CALCITRIOL. [Concomitant]
     Active Substance: CALCITRIOL
  12. RENVELA [Concomitant]
     Active Substance: SEVELAMER CARBONATE
  13. METHOCARBAMOL. [Concomitant]
     Active Substance: METHOCARBAMOL
  14. MIRALAX [Concomitant]
     Active Substance: POLYETHYLENE GLYCOL 3350
  15. SENSIPAR [Concomitant]
     Active Substance: CINACALCET HYDROCHLORIDE
  16. DOCQLACE [Concomitant]
     Active Substance: DOCUSATE SODIUM
  17. VITAMIN D3 [Concomitant]
     Active Substance: CHOLECALCIFEROL

REACTIONS (1)
  - Drug dose omission [Unknown]

NARRATIVE: CASE EVENT DATE: 201608
